FAERS Safety Report 4562676-8 (Version None)
Quarter: 2005Q1

REPORT INFORMATION
  Report Type: 
  Country: None (occurrence: None)
  Receive Date: 20050127
  Receipt Date: 20041222
  Transmission Date: 20050727
  Serious: Yes (Death, Other)
  Sender: FDA-Public Use
  Company Number: PHBS2004JP17153

PATIENT
  Age: 71 Year
  Sex: Male

DRUGS (5)
  1. CYCLOSPORINE [Suspect]
     Indication: BONE MARROW TRANSPLANT
     Route: 065
  2. METHOTREXATE [Concomitant]
     Indication: BONE MARROW TRANSPLANT
  3. GANCICLOVIR [Concomitant]
     Indication: ENCEPHALITIS VIRAL
     Dosage: 6 MG/KG/DAY
  4. FLUDARABINE [Concomitant]
  5. L-PAM [Concomitant]

REACTIONS (10)
  - ARTHROPATHY [None]
  - DEPRESSED LEVEL OF CONSCIOUSNESS [None]
  - DISORIENTATION [None]
  - ENCEPHALITIS VIRAL [None]
  - GRAFT VERSUS HOST DISEASE [None]
  - GRAND MAL CONVULSION [None]
  - HUMAN HERPESVIRUS 6 INFECTION [None]
  - MUSCULOSKELETAL STIFFNESS [None]
  - PYREXIA [None]
  - STATUS EPILEPTICUS [None]
